FAERS Safety Report 10101743 (Version 2)
Quarter: 2014Q2

REPORT INFORMATION
  Report Type: Spontaneous
  Country: BR (occurrence: BR)
  Receive Date: 20140424
  Receipt Date: 20140424
  Transmission Date: 20141212
  Serious: Yes (Death, Other)
  Sender: FDA-Public Use
  Company Number: BR-ROCHE-1356459

PATIENT
  Age: 61 Year
  Sex: Male
  Weight: 62 kg

DRUGS (11)
  1. METALYSE [Suspect]
     Indication: ACUTE MYOCARDIAL INFARCTION
     Route: 065
     Dates: start: 20131031
  2. METALYSE [Suspect]
     Indication: ELECTROCARDIOGRAM ST SEGMENT ELEVATION
  3. CAPTOPRIL [Concomitant]
     Route: 065
  4. CAPTOPRIL [Concomitant]
     Route: 065
  5. TRIDIL [Concomitant]
  6. CLOPIDOGREL [Concomitant]
     Route: 065
  7. ACETYLSALICYLIC ACID [Concomitant]
     Route: 065
  8. SIMVASTATINA [Concomitant]
  9. ATENOLOL [Concomitant]
     Route: 065
  10. OMEPRAZOL [Concomitant]
     Route: 065
  11. CLEXANE [Concomitant]
     Route: 065

REACTIONS (6)
  - Haemorrhagic stroke [Fatal]
  - Coma [Unknown]
  - Nausea [Unknown]
  - Vomiting [Unknown]
  - Miosis [Unknown]
  - Hypertension [Unknown]
